FAERS Safety Report 23583979 (Version 1)
Quarter: 2024Q1

REPORT INFORMATION
  Report Type: Spontaneous
  Country: US (occurrence: US)
  Receive Date: 20240301
  Receipt Date: 20240301
  Transmission Date: 20240410
  Serious: Yes (Other)
  Sender: FDA-Public Use
  Company Number: US-UROGEN PHARMA LTD.-2024-UGN-000009

PATIENT

DRUGS (6)
  1. JELMYTO [Suspect]
     Active Substance: MITOMYCIN
     Indication: Transitional cell cancer of the renal pelvis and ureter
     Dosage: UNK, ONCE A WEEK (INSTILLATION)
     Dates: start: 20230908, end: 20230908
  2. JELMYTO [Suspect]
     Active Substance: MITOMYCIN
     Dosage: UNK, ONCE A WEEK (INSTILLATION)
     Dates: start: 20230915, end: 20230915
  3. JELMYTO [Suspect]
     Active Substance: MITOMYCIN
     Dosage: UNK, ONCE A WEEK (INSTILLATION)
     Dates: start: 20230922, end: 20230922
  4. JELMYTO [Suspect]
     Active Substance: MITOMYCIN
     Dosage: UNK, ONCE A WEEK (INSTILLATION)
     Dates: start: 20230928, end: 20230928
  5. JELMYTO [Suspect]
     Active Substance: MITOMYCIN
     Dosage: UNK, ONCE A WEEK (INSTILLATION)
     Dates: start: 20231006, end: 20231006
  6. JELMYTO [Suspect]
     Active Substance: MITOMYCIN
     Dosage: UNK, ONCE A WEEK (INSTILLATION)
     Dates: start: 20231013, end: 20231013

REACTIONS (1)
  - Ureteric stenosis [Unknown]

NARRATIVE: CASE EVENT DATE: 20240105
